FAERS Safety Report 8366613-X (Version None)
Quarter: 2012Q2

REPORT INFORMATION
  Report Type: 
  Country: None (occurrence: None)
  Receive Date: 20120517
  Receipt Date: 20120418
  Transmission Date: 20120825
  Serious: Yes (Other)
  Sender: FDA-Public Use
  Company Number: CN-JNJFOC-20110809399

PATIENT
  Sex: Female
  Weight: 65 kg

DRUGS (9)
  1. RISPERDAL [Suspect]
     Indication: ASTHENIA
     Dosage: EVERY DAY BEFORE SLEEP
     Route: 048
     Dates: start: 20110725, end: 20110830
  2. VENLAFAXINE [Suspect]
     Indication: ASTHENIA
     Route: 048
     Dates: start: 20110725
  3. VENLAFAXINE [Suspect]
     Indication: DIZZINESS
     Route: 048
     Dates: start: 20110725
  4. ALPRAZOLAM [Suspect]
     Indication: ASTHENIA
     Route: 048
     Dates: start: 20110725
  5. RISPERDAL [Suspect]
     Indication: DIZZINESS
     Dosage: EVERY DAY BEFORE SLEEP
     Route: 048
     Dates: start: 20110725, end: 20110830
  6. VENLAFAXINE [Suspect]
     Indication: HEADACHE
     Route: 048
     Dates: start: 20110725
  7. ALPRAZOLAM [Suspect]
     Indication: DIZZINESS
     Route: 048
     Dates: start: 20110725
  8. ALPRAZOLAM [Suspect]
     Indication: HEADACHE
     Route: 048
     Dates: start: 20110725
  9. RISPERDAL [Suspect]
     Indication: HEADACHE
     Dosage: EVERY DAY BEFORE SLEEP
     Route: 048
     Dates: start: 20110725, end: 20110830

REACTIONS (8)
  - DYSPNOEA [None]
  - TOOTH DISORDER [None]
  - DYSURIA [None]
  - TOOTH LOSS [None]
  - URINARY INCONTINENCE [None]
  - LACRIMATION INCREASED [None]
  - TOOTHACHE [None]
  - DRY MOUTH [None]
